FAERS Safety Report 17254162 (Version 3)
Quarter: 2020Q1

REPORT INFORMATION
  Report Type: Report from Study
  Country: DE (occurrence: DE)
  Receive Date: 20200109
  Receipt Date: 20200117
  Transmission Date: 20200409
  Serious: Yes (Life-Threatening, Hospitalization)
  Sender: FDA-Public Use
  Company Number: DE-PFIZER INC-2020001828

PATIENT
  Age: 49 Year
  Sex: Male
  Weight: 89 kg

DRUGS (10)
  1. VORICONAZOL [Concomitant]
     Active Substance: VORICONAZOLE
     Indication: PYREXIA
     Dosage: UNK
     Dates: start: 20191226
  2. VANCOMYCIN [Concomitant]
     Active Substance: VANCOMYCIN
     Indication: FEBRILE INFECTION
     Dosage: UNK
     Dates: start: 20191225, end: 20191230
  3. HYDROXYCARBAMID [Concomitant]
     Active Substance: HYDROXYUREA
     Indication: HYPERURICAEMIA
     Dosage: UNK
     Dates: start: 20191212, end: 20191222
  4. GLASDEGIB [Suspect]
     Active Substance: GLASDEGIB
     Indication: ACUTE MYELOID LEUKAEMIA
     Dosage: UNK UNK, ONCE DAILY CONTINUOUS
     Route: 048
     Dates: start: 20191219, end: 20191230
  5. CYTARABINE. [Suspect]
     Active Substance: CYTARABINE
     Indication: ACUTE MYELOID LEUKAEMIA
     Dosage: 100 MG/M2, DAILY BY CONTINUOUS INFUSION
     Route: 041
     Dates: start: 20191219, end: 20191225
  6. MERONEM [Concomitant]
     Active Substance: MEROPENEM
     Indication: FEBRILE INFECTION
     Dosage: UNK
     Dates: start: 20191225
  7. DAUNORUBICIN HCL [Suspect]
     Active Substance: DAUNORUBICIN HYDROCHLORIDE
     Indication: ACUTE MYELOID LEUKAEMIA
     Dosage: 60 MG/M2, DAILY BY CONTINUOUS INFUSION
     Route: 041
     Dates: start: 20191219, end: 20191221
  8. METAMIZOL [Concomitant]
     Active Substance: METAMIZOLE SODIUM
     Indication: CHEST PAIN
     Dosage: UNK
     Dates: start: 20191224, end: 20191229
  9. LEVOFLOXACIN. [Concomitant]
     Active Substance: LEVOFLOXACIN
     Indication: INFECTION PROPHYLAXIS
     Dosage: UNK
     Dates: start: 20191216, end: 20191223
  10. FUROSEMID [Concomitant]
     Active Substance: FUROSEMIDE
     Indication: OEDEMA
     Dosage: UNK
     Dates: start: 20191229

REACTIONS (1)
  - Myocarditis [Recovered/Resolved with Sequelae]

NARRATIVE: CASE EVENT DATE: 20191230
